FAERS Safety Report 4331693-5 (Version None)
Quarter: 2004Q2

REPORT INFORMATION
  Report Type: 
  Country: None (occurrence: None)
  Receive Date: 20040405
  Receipt Date: 20030220
  Transmission Date: 20050107
  Serious: No
  Sender: FDA-Public Use
  Company Number: US-GLAXOSMITHKLINE-A0397381A

PATIENT
  Age: 49 Year
  Sex: Female
  Weight: 70.9 kg

DRUGS (6)
  1. FLOVENT [Suspect]
     Indication: ASTHMA
     Dosage: 220MCG TWICE PER DAY
     Route: 055
     Dates: start: 20020101
  2. ADVAIR DISKUS 100/50 [Suspect]
     Indication: ASTHMA
     Route: 055
     Dates: start: 20020101
  3. FLONASE [Suspect]
     Route: 045
  4. PULMICORT [Concomitant]
  5. ALBUTEROL [Concomitant]
  6. PREDNISONE [Concomitant]

REACTIONS (4)
  - DRUG INEFFECTIVE [None]
  - GINGIVAL BLEEDING [None]
  - HEADACHE [None]
  - MUSCLE CRAMP [None]
